FAERS Safety Report 18407816 (Version 1)
Quarter: 2020Q4

REPORT INFORMATION
  Report Type: Spontaneous
  Country: IT (occurrence: IT)
  Receive Date: 20201021
  Receipt Date: 20201021
  Transmission Date: 20210114
  Serious: Yes (Hospitalization)
  Sender: FDA-Public Use
  Company Number: IT-SA-2020SA294100

PATIENT

DRUGS (1)
  1. FERLIXIT [Suspect]
     Active Substance: SODIUM FERRIC GLUCONATE COMPLEX
     Indication: IRON DEFICIENCY ANAEMIA
     Dosage: 10 ML, QD
     Route: 041
     Dates: start: 20200928, end: 20200929

REACTIONS (7)
  - Nausea [Recovering/Resolving]
  - Hypersensitivity [Recovering/Resolving]
  - Laryngospasm [Recovering/Resolving]
  - Dysphagia [Recovering/Resolving]
  - Paraesthesia oral [Recovering/Resolving]
  - Paraesthesia [Recovering/Resolving]
  - Abdominal pain upper [Recovering/Resolving]

NARRATIVE: CASE EVENT DATE: 20200929
